FAERS Safety Report 4335056-8 (Version None)
Quarter: 2004Q1

REPORT INFORMATION
  Report Type: 
  Country: None (occurrence: None)
  Receive Date: 20040329
  Receipt Date: 20040127
  Transmission Date: 20041129
  Serious: No
  Sender: FDA-Public Use
  Company Number: 04P-163-0248621-00

PATIENT
  Age: 88 Year
  Sex: Female
  Weight: 81.6475 kg

DRUGS (8)
  1. HUMIRA [Suspect]
     Indication: RHEUMATOID ARTHRITIS
     Dosage: 40 MG, 1 IN 2 WK, SUBCUTANEOUS
     Route: 058
     Dates: start: 20030201
  2. LEVOTHYROXINE SODIUM [Concomitant]
  3. SINGULAIR [Concomitant]
  4. HYDROCHLOROTHIAZIDE [Concomitant]
  5. CLONIDINE [Concomitant]
  6. IRBESARTAN [Concomitant]
  7. FUROSEMIDE [Concomitant]
  8. POTASSIUM [Concomitant]

REACTIONS (1)
  - INFLUENZA LIKE ILLNESS [None]
